FAERS Safety Report 23705423 (Version 1)
Quarter: 2024Q2

REPORT INFORMATION
  Report Type: Spontaneous
  Country: CN (occurrence: CN)
  Receive Date: 20240404
  Receipt Date: 20240404
  Transmission Date: 20240716
  Serious: Yes (Life-Threatening, Other)
  Sender: FDA-Public Use
  Company Number: None

PATIENT
  Age: 70 Year
  Sex: Female
  Weight: 56 kg

DRUGS (7)
  1. CYCLOPHOSPHAMIDE [Suspect]
     Active Substance: CYCLOPHOSPHAMIDE
     Indication: Gastrointestinal lymphoma
     Dosage: 1000 MG, ONE TIME IN ONE DAY (ST), DILUTED WITH 100 ML OF SODIUM CHLORIDE, D1, ONE CYCLE
     Route: 041
     Dates: start: 20240312, end: 20240312
  2. SODIUM CHLORIDE [Suspect]
     Active Substance: SODIUM CHLORIDE
     Indication: Medication dilution
     Dosage: 100 ML, ONE TIME IN ONE DAY, USED TO DILUTE 1000 MG OF CYCLOPHOSPHAMIDE, D1 (DOSAGE FORM:INJECTION)
     Route: 041
     Dates: start: 20240312, end: 20240312
  3. SODIUM CHLORIDE [Suspect]
     Active Substance: SODIUM CHLORIDE
     Dosage: 20 ML, ONE TIME IN ONE DAY, USED TO DILUTE 1.8 MG OF VINCRISTINE SULFATE, D1 (DOSAGE FORM: INJECTION
     Route: 041
     Dates: start: 20240312, end: 20240312
  4. DEXTROSE [Suspect]
     Active Substance: DEXTROSE\DEXTROSE MONOHYDRATE
     Indication: Medication dilution
     Dosage: 100 ML, ONE TIME IN ONE DAY, USED TO DILUTE 70 MG OF PIRARUBICIN HYDROCHLORIDE, D1 (DOSAGE FORM: INJ
     Route: 041
     Dates: start: 20240312, end: 20240312
  5. PIRARUBICIN HYDROCHLORIDE [Suspect]
     Active Substance: PIRARUBICIN HYDROCHLORIDE
     Indication: Gastrointestinal lymphoma
     Dosage: 70 MG, ONE TIME IN ONE DAY (ST), DILUTED WITH 100 ML OF GLUCOSE, D1, ONE CYCLE
     Route: 041
     Dates: start: 20240312, end: 20240312
  6. VINCRISTINE SULFATE [Suspect]
     Active Substance: VINCRISTINE SULFATE
     Indication: Gastrointestinal lymphoma
     Dosage: 1.8 MG, ONE TIME IN ONE DAY (ST), DILUTED WITH 20 ML OF SODIUM CHLORIDE, D1, ONE CYCLE
     Route: 041
     Dates: start: 20240312, end: 20240312
  7. PREDNISONE ACETATE [Suspect]
     Active Substance: PREDNISONE ACETATE
     Indication: Gastrointestinal lymphoma
     Dosage: 100 MG, QD, D1-5, ONE CYCLE
     Route: 048
     Dates: start: 20240312, end: 20240316

REACTIONS (1)
  - Myelosuppression [Recovering/Resolving]

NARRATIVE: CASE EVENT DATE: 20240319
